FAERS Safety Report 17211807 (Version 1)
Quarter: 2019Q4

REPORT INFORMATION
  Report Type: Spontaneous
  Country: JP (occurrence: JP)
  Receive Date: 20191230
  Receipt Date: 20191230
  Transmission Date: 20200122
  Serious: Yes (Hospitalization)
  Sender: FDA-Public Use
  Company Number: JP-SA-2019SA356469

PATIENT
  Age: 79 Year
  Sex: Female

DRUGS (1)
  1. DOCETAXEL. [Suspect]
     Active Substance: DOCETAXEL
     Indication: GASTROOESOPHAGEAL CANCER
     Dosage: 70 MG/M2, Q3W

REACTIONS (7)
  - Laziness [Recovering/Resolving]
  - Condition aggravated [Recovering/Resolving]
  - Therapeutic response decreased [Unknown]
  - Weight decreased [Recovering/Resolving]
  - Throat tightness [Recovering/Resolving]
  - Decreased appetite [Recovering/Resolving]
  - Disease progression [Recovering/Resolving]
